FAERS Safety Report 4633544-8 (Version None)
Quarter: 2005Q2

REPORT INFORMATION
  Report Type: 
  Country: None (occurrence: None)
  Receive Date: 20050331
  Receipt Date: 20041206
  Transmission Date: 20051028
  Serious: Yes (Life-Threatening, Other)
  Sender: FDA-Public Use
  Company Number: 200415885BCC

PATIENT
  Age: 49 Year
  Sex: Male
  Weight: 86.1834 kg

DRUGS (2)
  1. ALEVE [Suspect]
     Dosage: 440 MG, ONCE, ORAL;  440 MG, ONCE, ORAL
     Route: 048
     Dates: start: 20020101
  2. ALEVE [Suspect]
     Dosage: 440 MG, ONCE, ORAL;  440 MG, ONCE, ORAL
     Route: 048
     Dates: start: 20020701

REACTIONS (5)
  - ALTERED VISUAL DEPTH PERCEPTION [None]
  - ANAPHYLACTIC SHOCK [None]
  - CAROTID PULSE ABNORMAL [None]
  - LOSS OF CONSCIOUSNESS [None]
  - PRURITUS GENERALISED [None]
